FAERS Safety Report 13505157 (Version 2)
Quarter: 2017Q2

REPORT INFORMATION
  Report Type: Spontaneous
  Country: NO (occurrence: NO)
  Receive Date: 20170502
  Receipt Date: 20170515
  Transmission Date: 20170830
  Serious: Yes (Other)
  Sender: FDA-Public Use
  Company Number: NO-REGENERON PHARMACEUTICALS, INC.-2017-15095

PATIENT

DRUGS (1)
  1. EYLEA [Suspect]
     Active Substance: AFLIBERCEPT
     Indication: EYE DISORDER
     Dosage: UNK
     Dates: start: 201612, end: 201612

REACTIONS (6)
  - Blindness transient [Recovered/Resolved]
  - Endophthalmitis [Unknown]
  - Visual impairment [Not Recovered/Not Resolved]
  - Inadequate aseptic technique in use of product [Unknown]
  - Cataract [Unknown]
  - Headache [Unknown]

NARRATIVE: CASE EVENT DATE: 201612
